FAERS Safety Report 15965741 (Version 1)
Quarter: 2019Q1

REPORT INFORMATION
  Report Type: Spontaneous
  Country: GB (occurrence: GB)
  Receive Date: 20190215
  Receipt Date: 20190215
  Transmission Date: 20190418
  Serious: Yes (Death, Other)
  Sender: FDA-Public Use
  Company Number: GB-AUROBINDO-AUR-APL-2019-007970

PATIENT

DRUGS (4)
  1. VIMPAT [Suspect]
     Active Substance: LACOSAMIDE
     Indication: EPILEPSY
     Dosage: UNK (LARGE INTAKE)
     Route: 065
     Dates: start: 20170801, end: 20170801
  2. LAMOTRIGINE. [Suspect]
     Active Substance: LAMOTRIGINE
     Indication: EPILEPSY
     Dosage: UNK (LARGE INTAKE)
     Route: 065
     Dates: start: 20170801, end: 20170801
  3. LAMOTRIGINE. [Suspect]
     Active Substance: LAMOTRIGINE
     Dosage: UNK
     Route: 065
     Dates: end: 2017
  4. VIMPAT [Suspect]
     Active Substance: LACOSAMIDE
     Dosage: UNK
     Route: 065
     Dates: end: 2017

REACTIONS (4)
  - Intentional overdose [Fatal]
  - Epilepsy [Unknown]
  - Amnesia [Unknown]
  - Completed suicide [Fatal]

NARRATIVE: CASE EVENT DATE: 20170801
